FAERS Safety Report 4476553-4 (Version None)
Quarter: 2004Q4

REPORT INFORMATION
  Report Type: 
  Country: None (occurrence: None)
  Receive Date: 20041013
  Receipt Date: 20040928
  Transmission Date: 20050328
  Serious: Yes (Hospitalization)
  Sender: FDA-Public Use
  Company Number: A0527680A

PATIENT
  Age: 59 Year
  Sex: Female
  Weight: 58.9676 kg

DRUGS (6)
  1. NICORETTE [Suspect]
     Indication: SMOKING CESSATION THERAPY
     Dosage: 2 MG/VARIABLE DOSE/TRANSBUCCAL
     Dates: start: 19900101
  2. LORAZEPAM [Concomitant]
  3. VALPROATE SODIUM [Concomitant]
  4. FLUTICASONE PROPIONATE [Concomitant]
  5. SALMETEROL XINAFOATE [Concomitant]
  6. ZAFIRLUKAST [Concomitant]

REACTIONS (6)
  - BRAIN HYPOXIA [None]
  - CAROTID ARTERY OCCLUSION [None]
  - CHEST PAIN [None]
  - DYSPEPSIA [None]
  - FALL [None]
  - FLATULENCE [None]
